FAERS Safety Report 16150176 (Version 1)
Quarter: 2019Q2

REPORT INFORMATION
  Report Type: Spontaneous
  Country: US (occurrence: US)
  Receive Date: 20190402
  Receipt Date: 20190402
  Transmission Date: 20190711
  Serious: Yes (Other)
  Sender: FDA-Public Use
  Company Number: None

PATIENT
  Sex: Female

DRUGS (7)
  1. TRAMADOL 50MG TABLETS [Concomitant]
     Active Substance: TRAMADOL HYDROCHLORIDE
     Dates: start: 20180901
  2. PANTOPRAZOLE 40MG TABLETS [Concomitant]
     Active Substance: PANTOPRAZOLE
     Dates: start: 20190328
  3. ESTRADIOL/NORETHINDRONE 0.5-0.1 TABLETS [Concomitant]
     Dates: start: 20190306
  4. LISINOPRIL 20 MG TABLETS [Concomitant]
     Active Substance: LISINOPRIL
     Dates: start: 20180227
  5. XELJANZ XR [Suspect]
     Active Substance: TOFACITINIB CITRATE
     Indication: RHEUMATOID ARTHRITIS
     Route: 048
  6. LOPREEZA 0.5-0.1 TABLETS [Concomitant]
     Dates: start: 20190312
  7. SUCRALFATE 1GM TABLETS [Concomitant]
     Active Substance: SUCRALFATE
     Dates: start: 20190327

REACTIONS (2)
  - Pharyngeal ulceration [None]
  - Gastric ulcer [None]
